FAERS Safety Report 15772285 (Version 2)
Quarter: 2018Q4

REPORT INFORMATION
  Report Type: Spontaneous
  Country: CN (occurrence: CN)
  Receive Date: 20181228
  Receipt Date: 20181231
  Transmission Date: 20190205
  Serious: Yes (Other)
  Sender: FDA-Public Use
  Company Number: CN-PFIZER INC-2018520681

PATIENT
  Age: 46 Year
  Sex: Female
  Weight: 61 kg

DRUGS (5)
  1. PACLITAXEL. [Suspect]
     Active Substance: PACLITAXEL
     Dosage: 210 MG, CYCLIC
     Route: 042
  2. CISPLATIN. [Suspect]
     Active Substance: CISPLATIN
     Dosage: 90 MG, CYCLIC
     Route: 033
  3. CISPLATIN. [Suspect]
     Active Substance: CISPLATIN
     Indication: OVARIAN EPITHELIAL CANCER
     Dosage: 90 MG, CYCLIC
     Route: 042
  4. PACLITAXEL. [Suspect]
     Active Substance: PACLITAXEL
     Indication: OVARIAN EPITHELIAL CANCER
     Dosage: 240 MG, CYCLIC
     Route: 042
  5. CARBOPLATIN. [Suspect]
     Active Substance: CARBOPLATIN
     Indication: OVARIAN EPITHELIAL CANCER
     Dosage: 500  MG, CYCLIC
     Route: 042

REACTIONS (3)
  - Nervous system disorder [Unknown]
  - Neurotoxicity [Unknown]
  - Neuropathy peripheral [Unknown]
